FAERS Safety Report 16136037 (Version 2)
Quarter: 2019Q2

REPORT INFORMATION
  Report Type: Spontaneous
  Country: JP (occurrence: JP)
  Receive Date: 20190329
  Receipt Date: 20190404
  Transmission Date: 20190711
  Serious: Yes (Other)
  Sender: FDA-Public Use
  Company Number: JP-PFIZER INC-2018495702

PATIENT
  Age: 48 Year
  Sex: Male

DRUGS (2)
  1. NAIXAN [NAPROXEN SODIUM] [Concomitant]
     Dosage: UNK
     Route: 048
  2. XELJANZ [Suspect]
     Active Substance: TOFACITINIB CITRATE
     Indication: COLITIS ULCERATIVE
     Dosage: 10 MG, 2X/DAY
     Route: 048
     Dates: start: 20181107, end: 20181205

REACTIONS (5)
  - Therapeutic response decreased [Unknown]
  - Immunodeficiency [Unknown]
  - Device related sepsis [Unknown]
  - Cytomegalovirus enterocolitis [Unknown]
  - Pyrexia [Not Recovered/Not Resolved]

NARRATIVE: CASE EVENT DATE: 20181130
